FAERS Safety Report 8221848-1 (Version None)
Quarter: 2012Q1

REPORT INFORMATION
  Report Type: 
  Country: None (occurrence: None)
  Receive Date: 20120316
  Receipt Date: 20120307
  Transmission Date: 20120608
  Serious: Yes (Hospitalization)
  Sender: FDA-Public Use
  Company Number: GER/GER/12/0023435

PATIENT
  Age: 62 Year
  Sex: Female

DRUGS (2)
  1. ZOPICLONE (ZOPICLONE) [Concomitant]
  2. SERTRALINE HYDROCHLORIDE [Suspect]
     Indication: PRODUCT USED FOR UNKNOWN INDICATION
     Dosage: 25 MG, ORAL
     Route: 048
     Dates: start: 20120105, end: 20120108

REACTIONS (3)
  - CONDITION AGGRAVATED [None]
  - TORTICOLLIS [None]
  - NERVOUS SYSTEM DISORDER [None]
